FAERS Safety Report 13935169 (Version 1)
Quarter: 2017Q3

REPORT INFORMATION
  Report Type: Spontaneous
  Country: US (occurrence: None)
  Receive Date: 20170901
  Receipt Date: 20170901
  Transmission Date: 20171127
  Serious: Yes (Hospitalization)
  Sender: FDA-Public Use
  Company Number: None

PATIENT
  Age: 69 Year
  Sex: Male

DRUGS (2)
  1. SPIRONOLACTONE. [Suspect]
     Active Substance: SPIRONOLACTONE
     Indication: HYPERTENSION
     Route: 048
     Dates: start: 20161215, end: 20170303
  2. LISINOPRIL. [Suspect]
     Active Substance: LISINOPRIL
     Indication: HYPERTENSION
     Route: 048
     Dates: start: 20160921

REACTIONS (7)
  - Dizziness [None]
  - Hypotension [None]
  - Acute kidney injury [None]
  - Upper respiratory tract infection [None]
  - Hyperkalaemia [None]
  - Dehydration [None]
  - Orthostatic hypotension [None]

NARRATIVE: CASE EVENT DATE: 20170301
